FAERS Safety Report 16474334 (Version 1)
Quarter: 2019Q2

REPORT INFORMATION
  Report Type: Spontaneous
  Country: US (occurrence: US)
  Receive Date: 20190625
  Receipt Date: 20190625
  Transmission Date: 20190711
  Serious: No
  Sender: FDA-Public Use
  Company Number: US-PFIZER INC-2019265996

PATIENT
  Sex: Female

DRUGS (2)
  1. ENBREL [Concomitant]
     Active Substance: ETANERCEPT
     Dosage: UNK
  2. GABAPENTIN. [Suspect]
     Active Substance: GABAPENTIN
     Dosage: UNK

REACTIONS (2)
  - Oedema [Unknown]
  - Drug hypersensitivity [Unknown]
